FAERS Safety Report 6028272-0 (Version None)
Quarter: 2009Q1

REPORT INFORMATION
  Report Type: 
  Country: None (occurrence: None)
  Receive Date: 20090102
  Receipt Date: 20081216
  Transmission Date: 20090719
  Serious: Yes (Other)
  Sender: FDA-Public Use
  Company Number: PHHY2008PL32050

PATIENT
  Sex: Female

DRUGS (1)
  1. VISUDYNE [Suspect]
     Dates: start: 20081209, end: 20081209

REACTIONS (2)
  - RETINAL ISCHAEMIA [None]
  - RETINAL OEDEMA [None]
